FAERS Safety Report 14922120 (Version 2)
Quarter: 2018Q2

REPORT INFORMATION
  Report Type: Spontaneous
  Country: US (occurrence: US)
  Receive Date: 20180522
  Receipt Date: 20180604
  Transmission Date: 20180711
  Serious: No
  Sender: FDA-Public Use
  Company Number: US-UNITED THERAPEUTICS-UNT-2018-005764

PATIENT
  Sex: Female

DRUGS (2)
  1. TYVASO [Suspect]
     Active Substance: TREPROSTINIL
     Indication: PULMONARY ARTERIAL HYPERTENSION
     Dosage: 36 ?G, QID
     Dates: start: 20180328, end: 20180521
  2. TYVASO [Suspect]
     Active Substance: TREPROSTINIL
     Dosage: 54 ?G, QID

REACTIONS (13)
  - Cough [Unknown]
  - Laryngeal pain [Unknown]
  - Productive cough [Unknown]
  - Trichorrhexis [Unknown]
  - Neuropathy peripheral [Unknown]
  - Oxygen consumption increased [Unknown]
  - Alopecia [Unknown]
  - Throat irritation [Unknown]
  - Laryngitis [Unknown]
  - Dyspnoea [Unknown]
  - Retching [Unknown]
  - Feeling abnormal [Unknown]
  - Aphonia [Unknown]

NARRATIVE: CASE EVENT DATE: 201805
